FAERS Safety Report 6821333-5 (Version None)
Quarter: 2010Q3

REPORT INFORMATION
  Report Type: 
  Country: None (occurrence: None)
  Receive Date: 20100707
  Receipt Date: 20080804
  Transmission Date: 20110219
  Serious: No
  Sender: FDA-Public Use
  Company Number: US-PFIZER INC-2008064146

PATIENT
  Sex: Female
  Weight: 59.1 kg

DRUGS (8)
  1. ZOLOFT [Suspect]
     Indication: ANXIETY
  2. ZOLOFT [Suspect]
     Indication: DEPRESSION
  3. ZOLOFT [Suspect]
     Indication: HOT FLUSH
  4. ZOLOFT [Suspect]
     Indication: NIGHT SWEATS
  5. SERTRALINE [Suspect]
     Indication: ANXIETY
     Dates: start: 20060101, end: 20060101
  6. SERTRALINE [Suspect]
     Indication: DEPRESSION
  7. SERTRALINE [Suspect]
     Indication: HOT FLUSH
  8. SERTRALINE [Suspect]
     Indication: NIGHT SWEATS

REACTIONS (7)
  - DRUG INEFFECTIVE [None]
  - ENERGY INCREASED [None]
  - INSOMNIA [None]
  - MIGRAINE [None]
  - NIGHT SWEATS [None]
  - PALPITATIONS [None]
  - WRONG TECHNIQUE IN DRUG USAGE PROCESS [None]
